FAERS Safety Report 10749550 (Version 3)
Quarter: 2015Q2

REPORT INFORMATION
  Report Type: Spontaneous
  Country: JP (occurrence: JP)
  Receive Date: 20150129
  Receipt Date: 20150427
  Transmission Date: 20150821
  Serious: Yes (Hospitalization, Disabling, Other)
  Sender: FDA-Public Use
  Company Number: JP-GLAXOSMITHKLINE-JP2014JPN008254

PATIENT
  Age: 80 Year
  Sex: Female
  Weight: 55.5 kg

DRUGS (14)
  1. VALTREX [Suspect]
     Active Substance: VALACYCLOVIR HYDROCHLORIDE
     Indication: HERPES ZOSTER
     Dosage: 1000 MG, TID
     Route: 048
     Dates: start: 20141009, end: 20141012
  2. BASEN [Concomitant]
     Active Substance: VOGLIBOSE
     Dosage: 0.3 MG, BID, BEFORE BREAKFAST AND SUPPER
  3. DOGMATYL [Concomitant]
     Active Substance: SULPIRIDE
     Dosage: 50 MG, BID, AFTER BREAKFAST AND SUPPER
  4. MAGLAX [Concomitant]
     Active Substance: MAGNESIUM OXIDE
     Dosage: 330 MG, TID, AFTER MEALS
  5. OMEPRAL [Concomitant]
     Active Substance: OMEPRAZOLE
     Dosage: 20 MG, QD, MORNING
  6. THYRADIN [Concomitant]
     Active Substance: LEVOTHYROXINE
     Dosage: 100 ?G, QD, MORNING
  7. CHINESE MEDICINE [Concomitant]
     Active Substance: UNSPECIFIED INGREDIENT
     Dosage: 2.5 G, TID, BETWEEN MEALS
  8. LENDORMIN [Concomitant]
     Active Substance: BROTIZOLAM
     Dosage: 0.25 MG, QD, BEFORE BEDTIME
  9. CEPHADOL [Concomitant]
     Active Substance: DIPHENIDOL HYDROCHLORIDE
     Dosage: 25 MG, TID, AFTER MEALS
  10. AMARYL [Concomitant]
     Active Substance: GLIMEPIRIDE
     Dosage: 1 MG, BID, AFTER BREAKFAST AND SUPPER
  11. SOLANAX [Concomitant]
     Active Substance: ALPRAZOLAM
     Dosage: 1.2 MG, BID, AFTER BREAKFAST AND SUPPER
  12. CONIEL [Concomitant]
     Active Substance: BENIDIPINE HYDROCHLORIDE
     Dosage: 4 MG, BID, AFTER BREAKFAST AND SUPPER
  13. BLOPRESS [Concomitant]
     Active Substance: CANDESARTAN CILEXETIL
     Indication: HYPERTENSION
  14. BEZATOL SR [Concomitant]
     Active Substance: BEZAFIBRATE
     Dosage: 200 MG, BID, AFTER BREAKFAST AND SUPPER

REACTIONS (12)
  - Depressed level of consciousness [Unknown]
  - Disorientation [Recovered/Resolved with Sequelae]
  - Hypoglycaemic encephalopathy [Not Recovered/Not Resolved]
  - Blood glucose decreased [Unknown]
  - Dysarthria [Unknown]
  - Cognitive disorder [Unknown]
  - Dyskinesia [Unknown]
  - Renal impairment [Unknown]
  - Binocular eye movement disorder [Unknown]
  - Asterixis [Unknown]
  - Toxic encephalopathy [Recovered/Resolved]
  - Altered state of consciousness [Recovering/Resolving]

NARRATIVE: CASE EVENT DATE: 20141013
